FAERS Safety Report 9660916 (Version 1)
Quarter: 2013Q4

REPORT INFORMATION
  Report Type: Spontaneous
  Country: US (occurrence: US)
  Receive Date: 20131031
  Receipt Date: 20131031
  Transmission Date: 20140711
  Serious: Yes (Hospitalization, Other)
  Sender: FDA-Public Use
  Company Number: US-TEVA-441831USA

PATIENT
  Sex: Male

DRUGS (1)
  1. PARAGARD 380A [Suspect]
     Route: 065

REACTIONS (3)
  - Hypoglycaemia neonatal [Unknown]
  - Use of accessory respiratory muscles [Unknown]
  - Poor weight gain neonatal [Unknown]
